FAERS Safety Report 8826634 (Version 4)
Quarter: 2013Q4

REPORT INFORMATION
  Report Type: Report from Study
  Country: AU (occurrence: AU)
  Receive Date: 20121005
  Receipt Date: 20131107
  Transmission Date: 20140711
  Serious: Yes (Hospitalization, Other)
  Sender: FDA-Public Use
  Company Number: AU-VERTEX PHARMACEUTICAL INC.-AE-2012-000323

PATIENT
  Age: 16 Year
  Sex: Female
  Weight: 47 kg

DRUGS (11)
  1. VX-770 [Suspect]
     Indication: CYSTIC FIBROSIS
     Dosage: 150 MG
     Route: 048
     Dates: start: 20101123
  2. NUTRISON [Concomitant]
     Indication: NUTRITIONAL SUPPLEMENTATION
     Dosage: 1000 UNK, UNK
     Dates: start: 20050803
  3. PULMOZYME [Concomitant]
     Indication: CYSTIC FIBROSIS LUNG
     Dosage: 2.5 MG, QD
     Route: 055
     Dates: start: 20010711
  4. CREON [Concomitant]
     Indication: PANCREATIC INSUFFICIENCY
     Route: 048
     Dates: start: 19990916
  5. GLUCOLYTE [Concomitant]
     Indication: HYPOVITAMINOSIS
     Route: 048
     Dates: start: 19970717
  6. SALBUTAMOL [Concomitant]
     Indication: ASTHMA
     Dosage: 400 ?G, PRN
     Route: 055
  7. SERETIDE [Concomitant]
     Indication: CYSTIC FIBROSIS LUNG
     Dosage: 125.25 ?G, BID
     Route: 055
     Dates: start: 20101112
  8. SERETIDE [Concomitant]
     Indication: ASTHMA
  9. SODIUM CHLORIDE [Concomitant]
     Indication: BLOOD SODIUM DECREASED
     Dosage: UNK
     Route: 048
  10. AZITHROMYCIN [Concomitant]
     Indication: CYSTIC FIBROSIS LUNG
     Dosage: 250 MG, UNK
     Route: 048
     Dates: start: 20101122
  11. BACTRIM FORTE [Concomitant]
     Indication: PRODUCTIVE COUGH
     Route: 048
     Dates: start: 20111211, end: 20120104

REACTIONS (2)
  - Depression [Recovered/Resolved]
  - Infective pulmonary exacerbation of cystic fibrosis [Recovered/Resolved]
